FAERS Safety Report 10750158 (Version 2)
Quarter: 2015Q1

REPORT INFORMATION
  Report Type: Spontaneous
  Country: IT (occurrence: IT)
  Receive Date: 20150129
  Receipt Date: 20150211
  Transmission Date: 20150721
  Serious: Yes (Hospitalization)
  Sender: FDA-Public Use
  Company Number: IT-FRI-1000073791

PATIENT
  Age: 89 Year
  Sex: Female

DRUGS (8)
  1. COTAREG [Suspect]
     Active Substance: HYDROCHLOROTHIAZIDE\VALSARTAN
     Indication: ESSENTIAL HYPERTENSION
     Dosage: 320/25 MG
     Route: 048
     Dates: start: 20060126, end: 20130213
  2. ZOLOFT [Concomitant]
     Active Substance: SERTRALINE HYDROCHLORIDE
  3. COUMADIN [Concomitant]
     Active Substance: WARFARIN SODIUM
  4. LANOXIN [Concomitant]
     Active Substance: DIGOXIN
  5. EUTIROX [Concomitant]
     Active Substance: LEVOTHYROXINE SODIUM
  6. NEBIVOLOL [Suspect]
     Active Substance: NEBIVOLOL
     Indication: ESSENTIAL HYPERTENSION
     Dosage: 5 MG
     Route: 048
     Dates: start: 20120725, end: 20130213
  7. LUCEN [Concomitant]
     Active Substance: ESOMEPRAZOLE
  8. TRIATEC [Suspect]
     Active Substance: RAMIPRIL
     Indication: ESSENTIAL HYPERTENSION
     Dosage: 10 MG
     Route: 048
     Dates: start: 20130107, end: 20130213

REACTIONS (1)
  - Orthostatic hypotension [Recovered/Resolved]

NARRATIVE: CASE EVENT DATE: 20130213
